FAERS Safety Report 21206350 (Version 1)
Quarter: 2022Q3

REPORT INFORMATION
  Report Type: Spontaneous
  Country: CN (occurrence: US)
  Receive Date: 20220812
  Receipt Date: 20220812
  Transmission Date: 20221027
  Serious: Yes (Hospitalization, Other)
  Sender: FDA-Public Use
  Company Number: CLT-CN-2022-0155-280464

PATIENT
  Age: 68 Year
  Sex: Female

DRUGS (10)
  1. LINEZOLID [Suspect]
     Active Substance: LINEZOLID
     Indication: Staphylococcal infection
     Dosage: 600 MG, TWICE DAILY
  2. NIFEDIPINE [Concomitant]
     Active Substance: NIFEDIPINE
     Indication: Hypertension
     Dosage: CONTROLLED-RELEASE TABLETS
  3. METOPROLOL [Concomitant]
     Active Substance: METOPROLOL
     Indication: Hypertension
     Dosage: SUSTAINED-RELEASE TABLETS
  4. QUETIAPINE FUMARATE [Suspect]
     Active Substance: QUETIAPINE FUMARATE
     Indication: Product used for unknown indication
  5. CILOSTAZOL [Concomitant]
     Active Substance: CILOSTAZOL
  6. CALCIUM CARBONATE [Concomitant]
     Active Substance: CALCIUM CARBONATE
  7. HYDROCORTISONE [Concomitant]
     Active Substance: HYDROCORTISONE
  8. VANCOMYCIN [Concomitant]
     Active Substance: VANCOMYCIN
     Indication: Staphylococcal infection
  9. LEVOFLOXACIN [Suspect]
     Active Substance: LEVOFLOXACIN
     Indication: Staphylococcal infection
  10. RIFAMPIN [Concomitant]
     Active Substance: RIFAMPIN
     Indication: Staphylococcal infection

REACTIONS (1)
  - Aplasia pure red cell [Recovered/Resolved]
